FAERS Safety Report 9485358 (Version 2)
Quarter: 2013Q4

REPORT INFORMATION
  Report Type: Report from Study
  Country: US (occurrence: US)
  Receive Date: 20130828
  Receipt Date: 20131204
  Transmission Date: 20140711
  Serious: Yes (Hospitalization)
  Sender: FDA-Public Use
  Company Number: US-ROCHE-1266154

PATIENT
  Age: 85 Year
  Sex: Male

DRUGS (3)
  1. LUCENTIS [Suspect]
     Indication: MACULAR DEGENERATION
     Dosage: LAST DOSE RECEIVED ON 21/AUG/2013.
     Route: 050
     Dates: start: 201206
  2. AVASTIN [Suspect]
     Indication: MACULAR DEGENERATION
     Dosage: LAST DOSE RECEIVED ON 21/AUG/2013.
     Route: 065
  3. AVASTIN [Suspect]
     Indication: OFF LABEL USE

REACTIONS (4)
  - Myocardial infarction [Unknown]
  - Optic nerve disorder [Unknown]
  - Hypoacusis [Unknown]
  - Visual acuity reduced [Unknown]
